APPROVED DRUG PRODUCT: THIOTEPA
Active Ingredient: THIOTEPA
Strength: 100MG/VIAL
Dosage Form/Route: POWDER;INTRACAVITARY, INTRAVENOUS, INTRAVESICAL
Application: A211755 | Product #001 | TE Code: AP
Applicant: HIKMA PHARMACEUTICALS USA INC
Approved: Sep 5, 2023 | RLD: No | RS: No | Type: RX